FAERS Safety Report 5589299-6 (Version None)
Quarter: 2008Q1

REPORT INFORMATION
  Report Type: 
  Country: None (occurrence: None)
  Receive Date: 20080110
  Receipt Date: 20080110
  Transmission Date: 20080703
  Serious: Yes (Hospitalization)
  Sender: FDA-Public Use
  Company Number: None

PATIENT
  Sex: Female
  Weight: 120 kg

DRUGS (2)
  1. YAZ [Suspect]
     Indication: MENORRHAGIA
     Dosage: ONE DAILY PO
     Route: 048
  2. CELEXA [Concomitant]

REACTIONS (1)
  - PULMONARY EMBOLISM [None]
